FAERS Safety Report 15683902 (Version 3)
Quarter: 2019Q2

REPORT INFORMATION
  Report Type: Spontaneous
  Country: JP (occurrence: JP)
  Receive Date: 20181204
  Receipt Date: 20190502
  Transmission Date: 20190711
  Serious: Yes (Death, Hospitalization, Other)
  Sender: FDA-Public Use
  Company Number: JP-009507513-1811JPN003365J

PATIENT
  Age: 74 Year
  Sex: Male

DRUGS (1)
  1. KEYTRUDA [Suspect]
     Active Substance: PEMBROLIZUMAB
     Indication: NON-SMALL CELL LUNG CANCER
     Dosage: 200 MILLIGRAM, Q3W
     Route: 041
     Dates: start: 20171227, end: 20180813

REACTIONS (5)
  - Gastrointestinal perforation [Fatal]
  - Malignant neoplasm progression [Unknown]
  - Liver disorder [Unknown]
  - Gastrointestinal haemorrhage [Fatal]
  - Cholangitis sclerosing [Fatal]

NARRATIVE: CASE EVENT DATE: 2018
